FAERS Safety Report 10130010 (Version 1)
Quarter: 2014Q2

REPORT INFORMATION
  Report Type: Spontaneous
  Country: US (occurrence: US)
  Receive Date: 20140428
  Receipt Date: 20140428
  Transmission Date: 20141212
  Serious: Yes (Other)
  Sender: FDA-Public Use
  Company Number: US-SA-2014SA038472

PATIENT
  Age: 65 Year
  Sex: Male

DRUGS (26)
  1. LANTUS SOLOSTAR [Suspect]
     Indication: TYPE 2 DIABETES MELLITUS
     Dosage: DOSE: 136 AM AND 150 PM (UNITS NOT SPECIFED)
     Route: 065
     Dates: start: 20090501
  2. SOLOSTAR [Concomitant]
     Indication: DEVICE THERAPY
  3. LAMICTAL [Concomitant]
     Dosage: 200 MG AND 50 MG AT BEDTIME
  4. MYSOLINE [Concomitant]
     Dosage: 2 TABLETS AM AND 2 TABLETS PM
  5. TOPAMAX [Concomitant]
  6. HUMALOG [Concomitant]
     Dosage: 24/32/40, INJECT WITH PEN 15 MIN PRIOR TO BREAKFAST, LUNCH/DINNER
  7. GLUCOPHAGE XR [Concomitant]
  8. VICTOZA [Concomitant]
  9. PLAVIX [Concomitant]
  10. ELOCON [Concomitant]
     Indication: RASH
  11. ELOCON [Concomitant]
     Indication: ECZEMA
  12. DIOVAN [Concomitant]
  13. LASIX [Concomitant]
  14. KLOR-CON [Concomitant]
  15. VICODIN [Concomitant]
     Dosage: EVERY 4-6 HOURS OF ARTHRITIS PAIN
  16. ZYLOPRIM [Concomitant]
  17. NYSTATIN/TRIAMCINOLONE ACETONIDE [Concomitant]
     Indication: RASH
  18. ZOFRAN [Concomitant]
     Indication: NAUSEA
  19. ZOFRAN [Concomitant]
     Indication: VOMITING
  20. MEVACOR [Concomitant]
  21. BACTROBAN [Concomitant]
     Route: 061
  22. PROVIGIL [Concomitant]
  23. ADVAIR [Concomitant]
  24. SALBUTAMOL [Concomitant]
  25. LIALDA [Concomitant]
  26. PANTOPRAZOLE [Concomitant]

REACTIONS (3)
  - Osteoarthritis [Not Recovered/Not Resolved]
  - Arthritis [Not Recovered/Not Resolved]
  - Drug administration error [Unknown]
